FAERS Safety Report 20346295 (Version 6)
Quarter: 2023Q1

REPORT INFORMATION
  Report Type: Spontaneous
  Country: US (occurrence: US)
  Receive Date: 20220118
  Receipt Date: 20230106
  Transmission Date: 20230418
  Serious: Yes (Hospitalization, Other)
  Sender: FDA-Public Use
  Company Number: US-PFIZER INC-202200022034

PATIENT
  Age: 59 Year
  Sex: Female
  Weight: 78.67 kg

DRUGS (4)
  1. IBRANCE [Suspect]
     Active Substance: PALBOCICLIB
     Indication: Breast cancer female
     Dosage: 125 MG, CYCLIC (ONE TABLET A DAY FOR THREE WEEKS AND THEN ONE WEEK OFF)
     Route: 048
     Dates: start: 20210830
  2. IBRANCE [Suspect]
     Active Substance: PALBOCICLIB
     Dosage: 125 MG, CYCLIC (1 DAILY FOR 21 DAYS FOLLOWED BY 7 DAYS OFF)
     Route: 048
     Dates: start: 20210831, end: 20221125
  3. FASLODEX [Concomitant]
     Active Substance: FULVESTRANT
     Dosage: UNK
  4. XGEVA [Concomitant]
     Active Substance: DENOSUMAB
     Dosage: UNK

REACTIONS (3)
  - COVID-19 pneumonia [Recovered/Resolved]
  - Neoplasm progression [Unknown]
  - Alopecia [Unknown]

NARRATIVE: CASE EVENT DATE: 20220103
